FAERS Safety Report 6645424-7 (Version None)
Quarter: 2010Q1

REPORT INFORMATION
  Report Type: 
  Country: None (occurrence: None)
  Receive Date: 20100322
  Receipt Date: 20100310
  Transmission Date: 20100710
  Serious: Yes (Other)
  Sender: FDA-Public Use
  Company Number: GB-BRISTOL-MYERS SQUIBB COMPANY-15011216

PATIENT
  Age: 49 Year
  Sex: Female

DRUGS (5)
  1. ACETYLSALICYLIC ACID [Suspect]
     Indication: ANTICOAGULANT THERAPY
     Dosage: ALSO TAKEN 75MG
  2. WARFARIN SODIUM [Suspect]
     Indication: ANTICOAGULANT THERAPY
  3. CLOPIDOGREL BISULFATE [Suspect]
     Indication: ANTICOAGULANT THERAPY
  4. GLYCOPROTEIN [Suspect]
     Indication: ANTICOAGULANT THERAPY
  5. TIROFIBAN HCL [Suspect]
     Route: 042

REACTIONS (2)
  - INFUSION SITE HAEMORRHAGE [None]
  - OFF LABEL USE [None]
